FAERS Safety Report 4666241-3 (Version None)
Quarter: 2005Q2

REPORT INFORMATION
  Report Type: 
  Country: None (occurrence: None)
  Receive Date: 20050518
  Receipt Date: 20050509
  Transmission Date: 20051028
  Serious: Yes (Life-Threatening, Hospitalization)
  Sender: FDA-Public Use
  Company Number: 2005-04-1189

PATIENT
  Age: 39 Year
  Sex: Male
  Weight: 66 kg

DRUGS (11)
  1. PEG-INTRON [Suspect]
     Indication: HEPATITIS C
     Dosage: SEE IMAGE, SUBCUTANEOUS
     Route: 058
     Dates: start: 20050322, end: 20050322
  2. PEG-INTRON [Suspect]
     Indication: HEPATITIS C
     Dosage: SEE IMAGE, SUBCUTANEOUS
     Route: 058
     Dates: start: 20050329, end: 20050329
  3. PEG-INTRON [Suspect]
     Indication: HEPATITIS C
     Dosage: SEE IMAGE, SUBCUTANEOUS
     Route: 058
     Dates: start: 20050322, end: 20050404
  4. PEG-INTRON [Suspect]
     Indication: HEPATITIS C
     Dosage: SEE IMAGE, SUBCUTANEOUS
     Route: 058
     Dates: start: 20050404, end: 20050404
  5. REBETOL [Suspect]
     Indication: HEPATITIS C
     Dosage: 800 MG ORAL
     Route: 048
     Dates: start: 20050322, end: 20050407
  6. ZERIT [Concomitant]
  7. EPIVIR [Concomitant]
  8. VIRACEPT [Concomitant]
  9. THYRADIN S TABLETS [Concomitant]
  10. METHYCOBAL TABLETS [Concomitant]
  11. KOGENATE (OCTOCOG ALFA) INJECTABLE [Concomitant]

REACTIONS (8)
  - ABNORMAL BEHAVIOUR [None]
  - CONDITION AGGRAVATED [None]
  - DEPRESSED LEVEL OF CONSCIOUSNESS [None]
  - FEELING ABNORMAL [None]
  - HEADACHE [None]
  - NEUTROPHIL COUNT DECREASED [None]
  - SUBDURAL HAEMORRHAGE [None]
  - VOMITING [None]
